FAERS Safety Report 10649073 (Version 6)
Quarter: 2015Q2

REPORT INFORMATION
  Report Type: Report from Study
  Country: US (occurrence: US)
  Receive Date: 20141212
  Receipt Date: 20150526
  Transmission Date: 20150821
  Serious: Yes (Hospitalization, Other)
  Sender: FDA-Public Use
  Company Number: US-SA-2014SA136583

PATIENT
  Age: 62 Year
  Sex: Female
  Weight: 78.93 kg

DRUGS (23)
  1. CARBAMAZEPINE. [Concomitant]
     Active Substance: CARBAMAZEPINE
     Route: 048
     Dates: start: 20140929
  2. TOPAMAX [Concomitant]
     Active Substance: TOPIRAMATE
     Route: 048
     Dates: start: 20110531
  3. CYCLOBENZAPRINE HYDROCHLORIDE. [Concomitant]
     Active Substance: CYCLOBENZAPRINE HYDROCHLORIDE
     Dosage: THREE TIMESA DAY AS NEEDED
     Route: 048
     Dates: start: 20140929
  4. AUBAGIO [Suspect]
     Active Substance: TERIFLUNOMIDE
     Indication: MULTIPLE SCLEROSIS
     Route: 048
     Dates: start: 20140720
  5. DIVALPROEX SODIUM. [Concomitant]
     Active Substance: DIVALPROEX SODIUM
     Route: 048
  6. MIRALAX [Concomitant]
     Active Substance: POLYETHYLENE GLYCOL 3350
     Dosage: 1 PACKET DAILY AS NEEDED
  7. OMEPRAZOLE. [Concomitant]
     Active Substance: OMEPRAZOLE
     Route: 048
  8. MIRAPEX [Concomitant]
     Active Substance: PRAMIPEXOLE DIHYDROCHLORIDE
  9. AUBAGIO [Suspect]
     Active Substance: TERIFLUNOMIDE
     Indication: MULTIPLE SCLEROSIS
     Route: 048
     Dates: start: 20140818
  10. CELEBREX [Concomitant]
     Active Substance: CELECOXIB
     Route: 048
  11. METFORMIN HYDROCHLORIDE. [Concomitant]
     Active Substance: METFORMIN HYDROCHLORIDE
  12. SERTRALINE HYDROCHLORIDE. [Concomitant]
     Active Substance: SERTRALINE HYDROCHLORIDE
     Route: 048
     Dates: start: 20130702
  13. ASPIRIN. [Concomitant]
     Active Substance: ASPIRIN
     Route: 048
  14. ATENOLOL. [Concomitant]
     Active Substance: ATENOLOL
     Route: 048
     Dates: start: 20140928
  15. LEVEMIR [Concomitant]
     Active Substance: INSULIN DETEMIR
     Dosage: INCREASE AS DIRECTED DOSE:6 UNIT(S)
     Route: 058
     Dates: start: 20141212
  16. LORATADINE. [Concomitant]
     Active Substance: LORATADINE
     Route: 048
  17. MIDODRINE HYDROCHLORIDE. [Concomitant]
     Active Substance: MIDODRINE HYDROCHLORIDE
     Route: 048
     Dates: start: 20141203
  18. VALIUM [Concomitant]
     Active Substance: DIAZEPAM
     Dosage: TAKEN1 TABLET BYN MOUTH 1 HOUR PRIOR PROCEDURE, MAY REPEAT IF NEEDED TEST TID
     Route: 048
     Dates: start: 20141021
  19. CRESTOR [Concomitant]
     Active Substance: ROSUVASTATIN CALCIUM
     Route: 048
     Dates: start: 20120508
  20. LYRICA [Concomitant]
     Active Substance: PREGABALIN
     Route: 048
  21. NASONEX [Concomitant]
     Active Substance: MOMETASONE FUROATE
     Dosage: 2 SPRAYS EACH NOSTRIL DAILY
     Dates: start: 20130318
  22. SYNTHROID [Concomitant]
     Active Substance: LEVOTHYROXINE SODIUM
     Route: 048
  23. TRAZODONE HYDROCHLORIDE. [Concomitant]
     Active Substance: TRAZODONE HYDROCHLORIDE
     Indication: SLEEP DISORDER
     Dosage: 1-2 QHS PRN
     Route: 048
     Dates: start: 20131128

REACTIONS (12)
  - Asthenia [Unknown]
  - Fatigue [Unknown]
  - Alopecia [Recovered/Resolved]
  - Headache [Unknown]
  - Influenza [Unknown]
  - Vomiting [Unknown]
  - Musculoskeletal discomfort [Unknown]
  - Nasopharyngitis [Unknown]
  - Blood glucose increased [Unknown]
  - Diarrhoea [Unknown]
  - Cough [Unknown]
  - Throat tightness [Unknown]

NARRATIVE: CASE EVENT DATE: 20140920
